FAERS Safety Report 25721250 (Version 1)
Quarter: 2025Q3

REPORT INFORMATION
  Report Type: Spontaneous
  Country: US (occurrence: None)
  Receive Date: 20250822
  Receipt Date: 20250822
  Transmission Date: 20251021
  Serious: Yes (Hospitalization)
  Sender: FDA-CTU
  Company Number: None

PATIENT
  Sex: Male

DRUGS (3)
  1. GAZYVA [Suspect]
     Active Substance: OBINUTUZUMAB
     Indication: Mantle cell lymphoma
     Route: 042
     Dates: start: 20250129
  2. BRUKINSA [Concomitant]
     Active Substance: ZANUBRUTINIB
     Dates: start: 20250117
  3. VENCLEXTA [Concomitant]
     Active Substance: VENETOCLAX
     Dates: start: 20250327

REACTIONS (3)
  - Loss of consciousness [None]
  - Drug hypersensitivity [None]
  - Amnesia [None]
